FAERS Safety Report 8596269-2 (Version None)
Quarter: 2012Q3

REPORT INFORMATION
  Report Type: 
  Country: None (occurrence: None)
  Receive Date: 20120815
  Receipt Date: 20120801
  Transmission Date: 20120928
  Serious: Yes (Hospitalization)
  Sender: FDA-Public Use
  Company Number: CH-WATSON-2012-12427

PATIENT
  Age: 66 Year
  Sex: Female

DRUGS (2)
  1. LISINOPRIL [Suspect]
     Indication: HYPERTENSION
     Dosage: UNK
     Route: 065
  2. COLOPHOS [Suspect]
     Indication: COLONOSCOPY
     Dosage: UNK

REACTIONS (2)
  - NEPHROPATHY [None]
  - TUBULOINTERSTITIAL NEPHRITIS [None]
